FAERS Safety Report 7609518-1 (Version None)
Quarter: 2011Q3

REPORT INFORMATION
  Report Type: 
  Country: None (occurrence: None)
  Receive Date: 20110714
  Receipt Date: 20110712
  Transmission Date: 20111222
  Serious: Yes (Death, Other)
  Sender: FDA-Public Use
  Company Number: PHHY2011AU62226

PATIENT
  Age: 22 Year
  Sex: Female

DRUGS (8)
  1. METHADONE HCL [Interacting]
     Dosage: UNK
  2. MORPHINE [Interacting]
     Dosage: UNK
  3. METOCLOPRAMIDE [Interacting]
     Dosage: UNK
  4. METHAMPHETAMINE HYDROCHLORIDE [Interacting]
     Dosage: UNK
  5. ACETAMINOPHEN [Interacting]
     Dosage: UNK
  6. FUROSEMIDE [Suspect]
     Dosage: UNK
  7. TETRAHYDROCANNABINOL [Interacting]
     Dosage: UNK
  8. METHYLENEDIOXYMETHAMPHETAMINE [Interacting]
     Dosage: UNK

REACTIONS (5)
  - HEPATITIS C [None]
  - MYOCARDIAL ISCHAEMIA [None]
  - PULMONARY OEDEMA [None]
  - DRUG INTERACTION [None]
  - TOXICITY TO VARIOUS AGENTS [None]
